FAERS Safety Report 19405024 (Version 1)
Quarter: 2021Q2

REPORT INFORMATION
  Report Type: Spontaneous
  Country: US (occurrence: US)
  Receive Date: 20210611
  Receipt Date: 20210611
  Transmission Date: 20210717
  Serious: No
  Sender: FDA-Public Use
  Company Number: None

PATIENT
  Age: 67 Year
  Sex: Male
  Weight: 91 kg

DRUGS (1)
  1. TBO?FILGRASTIM (TBO?FILGRASTIM 600MCG/ML (PF) INJ, SYRINGE , 0.8ML) [Suspect]
     Active Substance: TBO-FILGRASTIM
     Indication: MYELOSUPPRESSION
     Route: 048
     Dates: start: 20210225, end: 20210225

REACTIONS (5)
  - Heart rate increased [None]
  - Dyspnoea [None]
  - Hyperhidrosis [None]
  - Abdominal pain [None]
  - Anaphylactic reaction [None]

NARRATIVE: CASE EVENT DATE: 20210225
